FAERS Safety Report 5806601-8 (Version None)
Quarter: 2008Q3

REPORT INFORMATION
  Report Type: 
  Country: None (occurrence: None)
  Receive Date: 20080710
  Receipt Date: 20080630
  Transmission Date: 20090109
  Serious: Yes (Disabling)
  Sender: FDA-Public Use
  Company Number: PHEH2008US05097

PATIENT
  Sex: Female

DRUGS (5)
  1. AREDIA [Suspect]
     Indication: BREAST CANCER METASTATIC
     Dosage: 90MG Q MONTH
     Route: 042
     Dates: start: 20000401, end: 20030401
  2. ZOMETA [Suspect]
     Indication: BREAST CANCER METASTATIC
     Dosage: 4MG Q MONTH
     Route: 042
     Dates: start: 20000401, end: 20070801
  3. XELODA [Concomitant]
  4. FEMARA [Concomitant]
  5. TAMOXIFEN CITRATE [Concomitant]

REACTIONS (4)
  - BONE DISORDER [None]
  - INFECTION [None]
  - JAW OPERATION [None]
  - PAIN [None]
